FAERS Safety Report 4373775-8 (Version None)
Quarter: 2004Q2

REPORT INFORMATION
  Report Type: 
  Country: None (occurrence: None)
  Receive Date: 20040607
  Receipt Date: 20040607
  Transmission Date: 20050107
  Serious: Yes (Life-Threatening, Hospitalization)
  Sender: FDA-Public Use
  Company Number: None

PATIENT
  Age: 16 Year
  Sex: Male
  Weight: 97.0698 kg

DRUGS (2)
  1. ETOPOSIDE [Suspect]
     Indication: ACUTE LYMPHOCYTIC LEUKAEMIA
     Dosage: 300 MG /M2 X 1 IV
     Route: 042
     Dates: start: 20040518
  2. ZOFRAN [Concomitant]

REACTIONS (8)
  - BLOOD PRESSURE IMMEASURABLE [None]
  - CYANOSIS [None]
  - DYSPNOEA [None]
  - HYPERHIDROSIS [None]
  - OROPHARYNGEAL SWELLING [None]
  - PALLOR [None]
  - RESPIRATION ABNORMAL [None]
  - RESPIRATORY DISTRESS [None]
